FAERS Safety Report 24831112 (Version 1)
Quarter: 2025Q1

REPORT INFORMATION
  Report Type: Report from Study
  Country: US (occurrence: US)
  Receive Date: 20250110
  Receipt Date: 20250110
  Transmission Date: 20250409
  Serious: Yes (Hospitalization)
  Sender: EISAI
  Company Number: US-Eisai-EC-2024-175841

PATIENT
  Age: 49 Year
  Sex: Female

DRUGS (1)
  1. LENVIMA [Suspect]
     Active Substance: LENVATINIB
     Indication: Renal cancer
     Route: 048
     Dates: start: 20240924, end: 20241024

REACTIONS (4)
  - Intestinal perforation [Recovered/Resolved]
  - Flushing [Unknown]
  - Pain [Unknown]
  - Hypertension [Unknown]

NARRATIVE: CASE EVENT DATE: 20240901
